FAERS Safety Report 25553087 (Version 4)
Quarter: 2025Q3

REPORT INFORMATION
  Report Type: Report from Study
  Country: US (occurrence: US)
  Receive Date: 20250715
  Receipt Date: 20250928
  Transmission Date: 20251021
  Serious: Yes (Disabling)
  Sender: IPSEN BIOPHARMACEUTICALS, INC.
  Company Number: US-IPSEN Group, Research and Development-2025-16980

PATIENT
  Sex: Female

DRUGS (3)
  1. SOHONOS [Suspect]
     Active Substance: PALOVAROTENE
     Indication: Fibrodysplasia ossificans progressiva
     Route: 048
  2. SOHONOS [Suspect]
     Active Substance: PALOVAROTENE
     Route: 048
  3. SOHONOS [Suspect]
     Active Substance: PALOVAROTENE
     Route: 048
     Dates: end: 2019

REACTIONS (5)
  - Acne [Unknown]
  - Keratosis pilaris [Unknown]
  - Cheilitis [Unknown]
  - Skin fissures [Unknown]
  - Photosensitivity reaction [Unknown]

NARRATIVE: CASE EVENT DATE: 20160101
